FAERS Safety Report 17921134 (Version 1)
Quarter: 2020Q2

REPORT INFORMATION
  Report Type: Spontaneous
  Country: PL (occurrence: PL)
  Receive Date: 20200622
  Receipt Date: 20200622
  Transmission Date: 20200714
  Serious: Yes (Death)
  Sender: FDA-Public Use
  Company Number: PL-BIOGEN-2020BI00887801

PATIENT
  Age: 9 Year
  Sex: Male

DRUGS (1)
  1. SPINRAZA [Suspect]
     Active Substance: NUSINERSEN
     Indication: SPINAL MUSCULAR ATROPHY
     Route: 065
     Dates: start: 20190907, end: 20200609

REACTIONS (3)
  - Oxygen saturation abnormal [Unknown]
  - Death [Fatal]
  - Motor dysfunction [Unknown]

NARRATIVE: CASE EVENT DATE: 20200611
